FAERS Safety Report 7649953-9 (Version None)
Quarter: 2011Q3

REPORT INFORMATION
  Report Type: 
  Country: None (occurrence: None)
  Receive Date: 20110802
  Receipt Date: 20110720
  Transmission Date: 20111222
  Serious: Yes (Hospitalization, Other)
  Sender: FDA-Public Use
  Company Number: US-BAYER-201034746NA

PATIENT
  Age: 48 Year
  Sex: Female
  Weight: 99.773 kg

DRUGS (5)
  1. YASMIN [Suspect]
     Indication: PRODUCT USED FOR UNKNOWN INDICATION
     Dosage: UNK
     Route: 048
     Dates: start: 20030101, end: 20070101
  2. YAZ [Suspect]
     Indication: PRODUCT USED FOR UNKNOWN INDICATION
     Dosage: UNK
     Dates: start: 20030101, end: 20070101
  3. HYDROCHLOROTHIAZIDE [Concomitant]
     Dosage: UNK
     Dates: start: 20030101
  4. BENICAR [Concomitant]
     Dosage: UNK
     Dates: start: 20030101
  5. MEDROL [Concomitant]
     Indication: PLEURISY

REACTIONS (3)
  - GALLBLADDER INJURY [None]
  - DEEP VEIN THROMBOSIS [None]
  - PAIN [None]
